FAERS Safety Report 23569520 (Version 2)
Quarter: 2024Q2

REPORT INFORMATION
  Report Type: Report from Study
  Country: US (occurrence: US)
  Receive Date: 20240227
  Receipt Date: 20240424
  Transmission Date: 20240716
  Serious: Yes (Hospitalization, Other)
  Sender: FDA-Public Use
  Company Number: US-ASTELLAS-2024US005766

PATIENT
  Sex: Male

DRUGS (24)
  1. GILTERITINIB [Suspect]
     Active Substance: GILTERITINIB
     Indication: Acute myeloid leukaemia
     Route: 048
     Dates: start: 20231010
  2. GILTERITINIB [Suspect]
     Active Substance: GILTERITINIB
     Route: 048
     Dates: start: 20231204
  3. GILTERITINIB [Suspect]
     Active Substance: GILTERITINIB
     Route: 048
     Dates: start: 20240108, end: 20240206
  4. GILTERITINIB [Suspect]
     Active Substance: GILTERITINIB
     Route: 048
     Dates: start: 20240219
  5. GILTERITINIB [Suspect]
     Active Substance: GILTERITINIB
     Route: 048
     Dates: start: 20240401
  6. FLOMAX [Concomitant]
     Active Substance: TAMSULOSIN HYDROCHLORIDE
     Indication: Product used for unknown indication
     Dosage: 0.4 MG, ONCE DAILY
     Route: 048
  7. VENCLEXTA [Concomitant]
     Active Substance: VENETOCLAX
     Indication: Acute myeloid leukaemia
     Dosage: UNK UNK, UNKNOWN FREQ. 14 DAYS
     Route: 065
     Dates: start: 20231010
  8. VENCLEXTA [Concomitant]
     Active Substance: VENETOCLAX
     Route: 065
     Dates: start: 20231106
  9. VENCLEXTA [Concomitant]
     Active Substance: VENETOCLAX
     Dosage: UNK UNK, UNKNOWN FREQ. 14 DAYS
     Route: 065
     Dates: start: 20231204
  10. VENCLEXTA [Concomitant]
     Active Substance: VENETOCLAX
     Dosage: UNK UNK, UNKNOWN FREQ. 14 DAYS
     Route: 065
     Dates: start: 20240108
  11. VENCLEXTA [Concomitant]
     Active Substance: VENETOCLAX
     Dosage: UNK UNK, UNKNOWN FREQ. 7 DAYS
     Route: 065
     Dates: start: 20240219
  12. VENCLEXTA [Concomitant]
     Active Substance: VENETOCLAX
     Dosage: UNK UNK, UNKNOWN FREQ.
     Route: 065
     Dates: start: 20240401
  13. AZACITIDINE [Concomitant]
     Active Substance: AZACITIDINE
     Indication: Acute myeloid leukaemia
     Dosage: UNK UNK, UNKNOWN FREQ. 7 DAYS
     Route: 065
     Dates: start: 20231010
  14. AZACITIDINE [Concomitant]
     Active Substance: AZACITIDINE
     Dosage: UNK UNK, UNKNOWN FREQ. 5 DAYS
     Route: 065
     Dates: start: 20231204
  15. AZACITIDINE [Concomitant]
     Active Substance: AZACITIDINE
     Dosage: UNK UNK, UNKNOWN FREQ. 6 DAYS
     Route: 065
     Dates: start: 20240108
  16. AZACITIDINE [Concomitant]
     Active Substance: AZACITIDINE
     Dosage: UNK UNK, UNKNOWN FREQ. 5 DAYS
     Route: 065
     Dates: start: 20240219
  17. AZACITIDINE [Concomitant]
     Active Substance: AZACITIDINE
     Dosage: UNK UNK, UNKNOWN FREQ. 5 DAYS
     Route: 065
     Dates: start: 20240401
  18. PANTOPRAZOLE [Concomitant]
     Active Substance: PANTOPRAZOLE
     Indication: Product used for unknown indication
     Route: 048
  19. ONDANSETRON HYDROCHLORIDE [Concomitant]
     Active Substance: ONDANSETRON HYDROCHLORIDE
     Indication: Product used for unknown indication
     Dosage: 8 MG, EVERY 8 HOURS PRN
     Route: 048
  20. PROCHLORPERAZINE EDISYLATE [Concomitant]
     Active Substance: PROCHLORPERAZINE EDISYLATE
     Indication: Product used for unknown indication
     Dosage: 10 MG, EVERY 6 HOURS PRN
     Route: 042
  21. FINASTERIDE [Concomitant]
     Active Substance: FINASTERIDE
     Indication: Product used for unknown indication
     Dosage: UNK UNK, UNKNOWN FREQ.
     Route: 065
  22. VENLAFAXINE [Concomitant]
     Active Substance: VENLAFAXINE HYDROCHLORIDE
     Indication: Product used for unknown indication
     Route: 048
  23. ZOVIRAX [Concomitant]
     Active Substance: ACYCLOVIR
     Indication: Product used for unknown indication
     Route: 048
  24. MIDODRINE [Concomitant]
     Active Substance: MIDODRINE
     Indication: Product used for unknown indication
     Route: 065

REACTIONS (2)
  - White blood cell count decreased [Not Recovered/Not Resolved]
  - Neutropenia [Unknown]
